FAERS Safety Report 8398673-4 (Version None)
Quarter: 2012Q2

REPORT INFORMATION
  Report Type: 
  Country: None (occurrence: None)
  Receive Date: 20120531
  Receipt Date: 20120516
  Transmission Date: 20120825
  Serious: Yes (Death)
  Sender: FDA-Public Use
  Company Number: JP-ROCHE-1072751

PATIENT
  Sex: Male

DRUGS (5)
  1. TEGRETOL [Suspect]
     Indication: GUILLAIN-BARRE SYNDROME
     Route: 048
     Dates: start: 20100113, end: 20100226
  2. HUMAN IMMUNOGLOBULIN [Concomitant]
     Dosage: UNKNOWN
     Route: 051
     Dates: start: 20091219, end: 20091223
  3. ALLOPURINOL [Suspect]
     Indication: HYPERURICOSURIA
     Route: 048
     Dates: start: 20091221, end: 20100226
  4. ALLOPURINOL [Suspect]
     Indication: INFLUENZA IMMUNISATION
  5. VALGANCICLOVIR [Suspect]
     Indication: CYTOMEGALOVIRUS INFECTION
     Dosage: 450 MG EVERY OTHER DAY
     Route: 048
     Dates: start: 20100326, end: 20100414

REACTIONS (3)
  - PNEUMOCYSTIS JIROVECI PNEUMONIA [None]
  - PANCYTOPENIA [None]
  - DRUG RASH WITH EOSINOPHILIA AND SYSTEMIC SYMPTOMS [None]
